FAERS Safety Report 12011318 (Version 3)
Quarter: 2025Q3

REPORT INFORMATION
  Report Type: Spontaneous
  Country: CH (occurrence: CH)
  Receive Date: 20160205
  Receipt Date: 20250815
  Transmission Date: 20251020
  Serious: Yes (Death)
  Sender: MERCK SHARP & DOHME LLC
  Company Number: CH-009507513-1602CHE002045

PATIENT
  Age: 3 Year
  Sex: Female

DRUGS (7)
  1. CANCIDAS [Suspect]
     Active Substance: CASPOFUNGIN ACETATE
     Indication: Candida infection
     Dosage: DOSE DESCRIPTION : 100 MG/M2, QD?DAILY DOSE : 100 MILLIGRAM/SQ. METER?REGIMEN DOSE : 4200  MILLIG...
     Dates: start: 20130616, end: 20130725
  2. CANCIDAS [Suspect]
     Active Substance: CASPOFUNGIN ACETATE
     Indication: Candida infection
     Dosage: DOSE DESCRIPTION : 100 MG/M2, QD?DAILY DOSE : 100 MILLIGRAM/SQ. METER?REGIMEN DOSE : 2600  MILLIG...
     Dates: start: 20130806, end: 20130831
  3. FUNGIZONE [Suspect]
     Active Substance: AMPHOTERICIN B
     Indication: Antibiotic prophylaxis
     Route: 042
     Dates: start: 20130424, end: 20130616
  4. FUNGIZONE [Suspect]
     Active Substance: AMPHOTERICIN B
     Indication: Antibiotic prophylaxis
     Route: 042
     Dates: start: 20130831, end: 2013
  5. VORICONAZOLE [Suspect]
     Active Substance: VORICONAZOLE
     Indication: Candida infection
     Dates: start: 20130703, end: 20130709
  6. VORICONAZOLE [Suspect]
     Active Substance: VORICONAZOLE
     Indication: Candida infection
     Dates: start: 20130816, end: 2013
  7. FLUCONAZOLE [Suspect]
     Active Substance: FLUCONAZOLE
     Indication: Candida infection
     Route: 042
     Dates: start: 20130709, end: 20130816

REACTIONS (2)
  - Treatment failure [Fatal]
  - Multiple-drug resistance [Fatal]

NARRATIVE: CASE EVENT DATE: 20130701
